FAERS Safety Report 4475538-1 (Version None)
Quarter: 2004Q4

REPORT INFORMATION
  Report Type: 
  Country: None (occurrence: None)
  Receive Date: 20041014
  Receipt Date: 20041014
  Transmission Date: 20050328
  Serious: Yes (Congenital Anomaly, Other)
  Sender: FDA-Public Use
  Company Number: None

PATIENT
  Age: 32 Year
  Sex: Male
  Weight: 122.4712 kg

DRUGS (1)
  1. STELAZINE [Suspect]
     Indication: SCHIZOPHRENIA
     Dosage: 10 MG 3 TIMES A DAY ORAL
     Route: 048
     Dates: start: 20000113, end: 20021118

REACTIONS (2)
  - HEPATIC ENZYME INCREASED [None]
  - HEPATIC STEATOSIS [None]
